FAERS Safety Report 15833692 (Version 1)
Quarter: 2019Q1

REPORT INFORMATION
  Report Type: Spontaneous
  Country: US (occurrence: US)
  Receive Date: 20190116
  Receipt Date: 20190116
  Transmission Date: 20190417
  Serious: No
  Sender: FDA-Public Use
  Company Number: US-MIKART, INC.-2061245

PATIENT
  Age: 70 Year
  Sex: Female

DRUGS (1)
  1. CHLORZOXAZONE. [Suspect]
     Active Substance: CHLORZOXAZONE
     Indication: FIBROMYALGIA
     Route: 048

REACTIONS (1)
  - Somnolence [Recovered/Resolved]
